FAERS Safety Report 9789135 (Version 2)
Quarter: 2014Q1

REPORT INFORMATION
  Report Type: Spontaneous
  Country: JP (occurrence: JP)
  Receive Date: 20131230
  Receipt Date: 20140205
  Transmission Date: 20141002
  Serious: Yes (Other)
  Sender: FDA-Public Use
  Company Number: JP-UCBSA-107425

PATIENT
  Age: 0 None
  Sex: 0

DRUGS (4)
  1. E KEPPRA [Suspect]
     Indication: PARTIAL SEIZURES
     Dosage: 500 MG X 4/DAY PLUS 250 MG X 2/DAY
     Route: 064
     Dates: start: 201207, end: 20130516
  2. ALEVIATIN [Suspect]
     Indication: EPILEPSY
     Dosage: 100 MG + 200 MG, DAILY DOSE: 300 MG
     Route: 064
     Dates: start: 201207, end: 20130516
  3. TEGRETOL [Suspect]
     Indication: EPILEPSY
     Route: 064
     Dates: start: 201207, end: 20130516
  4. PHENOBAL [Suspect]
     Indication: EPILEPSY
     Route: 064
     Dates: start: 201207, end: 20130516

REACTIONS (2)
  - Premature baby [Unknown]
  - Foetal exposure during pregnancy [Recovered/Resolved]
